FAERS Safety Report 22108518 (Version 2)
Quarter: 2023Q1

REPORT INFORMATION
  Report Type: Spontaneous
  Country: JP (occurrence: JP)
  Receive Date: 20230317
  Receipt Date: 20230328
  Transmission Date: 20230418
  Serious: Yes (Death, Hospitalization, Other)
  Sender: FDA-Public Use
  Company Number: JP-INSMED-2022-00882-JPAA

PATIENT
  Age: 73 Year
  Sex: Female
  Weight: 30 kg

DRUGS (13)
  1. ARIKAYCE [Suspect]
     Active Substance: AMIKACIN
     Indication: Atypical mycobacterial infection
     Dosage: 590 MILLIGRAM, QD
     Route: 055
     Dates: start: 20211110, end: 20220613
  2. ARIKAYCE [Suspect]
     Active Substance: AMIKACIN
     Dosage: 590 MILLIGRAM, QD
     Route: 055
     Dates: start: 20220628, end: 20220728
  3. ARIKAYCE [Suspect]
     Active Substance: AMIKACIN
     Dosage: 590 MILLIGRAM, QD
     Route: 055
     Dates: start: 20220801, end: 20220816
  4. EBUTOL [Concomitant]
     Active Substance: ETHAMBUTOL HYDROCHLORIDE
     Indication: Atypical mycobacterial infection
     Dosage: 500 MILLIGRAM, QD
     Route: 048
     Dates: start: 20201210
  5. AZITHROMYCIN DIHYDRATE [Concomitant]
     Active Substance: AZITHROMYCIN DIHYDRATE
     Indication: Atypical mycobacterial infection
     Dosage: 250 MILLIGRAM, QD
     Route: 048
     Dates: start: 20201205
  6. CILNIDIPINE [Concomitant]
     Active Substance: CILNIDIPINE
     Indication: Hypertension
     Dosage: 5 MILLIGRAM, QD
     Route: 048
     Dates: start: 20211006
  7. CARBOCYSTEINE [Concomitant]
     Active Substance: CARBOCYSTEINE
     Indication: Productive cough
     Dosage: 500 MILLIGRAM, BID
     Route: 048
     Dates: start: 20201210
  8. MIYA-BM [Concomitant]
     Active Substance: CLOSTRIDIUM BUTYRICUM SPORES STRAIN M-55
     Indication: Dysbiosis
     Dosage: 1 GRAM, BID
     Route: 048
     Dates: start: 20201210
  9. REBAMIPIDE [Concomitant]
     Active Substance: REBAMIPIDE
     Indication: Gastritis
     Dosage: 100 MILLIGRAM, TID
     Route: 048
     Dates: start: 20201210
  10. URAPIDIL [Concomitant]
     Active Substance: URAPIDIL
     Indication: Dysuria
     Dosage: 15 MILLIGRAM, BID
     Route: 048
     Dates: start: 20201209
  11. URAPIDIL [Concomitant]
     Active Substance: URAPIDIL
     Indication: Neurogenic bladder
  12. DIMETHICONE [Concomitant]
     Active Substance: DIMETHICONE
     Indication: Antitussive therapy
     Dosage: 40 MILLIGRAM, BID
     Route: 048
     Dates: start: 202205
  13. HERBALS [Concomitant]
     Active Substance: HERBALS
     Indication: Antitussive therapy
     Dosage: 3 GRAM, TID
     Route: 048
     Dates: start: 20201212

REACTIONS (3)
  - Pneumonia [Fatal]
  - COVID-19 [Recovered/Resolved]
  - Visual impairment [Unknown]

NARRATIVE: CASE EVENT DATE: 20220610
